FAERS Safety Report 24666211 (Version 1)
Quarter: 2024Q4

REPORT INFORMATION
  Report Type: Spontaneous
  Country: TR (occurrence: TR)
  Receive Date: 20241126
  Receipt Date: 20241126
  Transmission Date: 20250115
  Serious: Yes (Other)
  Sender: AMGEN
  Company Number: TR-AMGEN-TURSP2024231236

PATIENT

DRUGS (8)
  1. BEVACIZUMAB [Suspect]
     Active Substance: BEVACIZUMAB
     Indication: Ovarian cancer metastatic
     Dosage: UNK (MEDIAN OF 9 CYCLES)
     Route: 065
  2. BEVACIZUMAB [Suspect]
     Active Substance: BEVACIZUMAB
     Indication: Ovarian cancer recurrent
  3. CARBOPLATIN\GEMCITABINE [Concomitant]
     Active Substance: CARBOPLATIN\GEMCITABINE
     Indication: Ovarian cancer metastatic
     Route: 065
  4. CARBOPLATIN\GEMCITABINE [Concomitant]
     Active Substance: CARBOPLATIN\GEMCITABINE
     Indication: Ovarian cancer recurrent
  5. CARBOPLATIN\PACLITAXEL [Concomitant]
     Active Substance: CARBOPLATIN\PACLITAXEL
     Indication: Ovarian cancer metastatic
     Route: 065
  6. CARBOPLATIN\PACLITAXEL [Concomitant]
     Active Substance: CARBOPLATIN\PACLITAXEL
     Indication: Ovarian cancer recurrent
  7. CISPLATIN;GEMCITABINE [Concomitant]
     Indication: Ovarian cancer metastatic
     Route: 065
  8. CISPLATIN;GEMCITABINE [Concomitant]
     Indication: Ovarian cancer recurrent

REACTIONS (3)
  - Ovarian cancer metastatic [Unknown]
  - Ovarian cancer recurrent [Unknown]
  - Therapy partial responder [Unknown]
